FAERS Safety Report 4880022-7 (Version None)
Quarter: 2006Q1

REPORT INFORMATION
  Report Type: 
  Country: None (occurrence: None)
  Receive Date: 20060113
  Receipt Date: 20051213
  Transmission Date: 20060701
  Serious: Yes (Life-Threatening, Hospitalization)
  Sender: FDA-Public Use
  Company Number: JP-SANOFI-SYNTHELABO-A01200508834

PATIENT
  Sex: Female
  Weight: 46 kg

DRUGS (8)
  1. OXALIPLATIN [Suspect]
     Indication: LARGE INTESTINE CARCINOMA
     Dosage: 120 MG/BODY=85.7 MG/M2, INFUSION D1
     Route: 042
     Dates: start: 20051110, end: 20051110
  2. FLUOROURACIL [Suspect]
     Indication: LARGE INTESTINE CARCINOMA
     Dosage: 450 MG/BODY=321.4 MG/M2 IN BOLUS THEN 900 MG/BODY=642.9 MG/M2 AS CONTINUOUS INFUSION, D1+2
     Route: 042
     Dates: start: 20051110, end: 20051111
  3. ISOVORIN [Suspect]
     Dosage: 150 MG/BODY=107.1 MG/M2, INFUSION D1+2
     Dates: start: 20051110, end: 20051111
  4. NASEA [Concomitant]
     Route: 042
     Dates: start: 20051110, end: 20051111
  5. DECADRON [Concomitant]
     Route: 042
     Dates: start: 20051110, end: 20051111
  6. CALCICOL [Concomitant]
     Route: 042
     Dates: start: 20051110, end: 20051111
  7. MAGNESOL [Concomitant]
     Route: 042
     Dates: start: 20051110, end: 20051111
  8. ASPIRIN [Concomitant]
     Route: 048
     Dates: start: 20051210

REACTIONS (1)
  - DISSEMINATED INTRAVASCULAR COAGULATION [None]
